FAERS Safety Report 4405244-0 (Version None)
Quarter: 2004Q3

REPORT INFORMATION
  Report Type: 
  Country: None (occurrence: None)
  Receive Date: 20040723
  Receipt Date: 20040712
  Transmission Date: 20050211
  Serious: Yes (Hospitalization)
  Sender: FDA-Public Use
  Company Number: PHEH2004US07470

PATIENT
  Age: 72 Year
  Sex: Female
  Weight: 44 kg

DRUGS (7)
  1. ZOMETA [Suspect]
     Indication: MULTIPLE MYELOMA
     Dates: start: 20021231, end: 20030516
  2. TRISENOX [Suspect]
     Indication: MULTIPLE MYELOMA
     Dosage: 16 MG, UNK
     Dates: start: 20021014, end: 20030516
  3. PREMPRO [Concomitant]
  4. ALLOPURINOL [Concomitant]
  5. FOSAMAX [Concomitant]
  6. NEURONTIN [Concomitant]
  7. DEXAMETHASONE [Concomitant]
     Indication: MULTIPLE MYELOMA
     Dosage: 20 MG, UNK
     Dates: start: 20021014

REACTIONS (10)
  - ASTHENIA [None]
  - BLOOD CREATININE INCREASED [None]
  - BLOOD UREA INCREASED [None]
  - DYSPNOEA [None]
  - HAEMOGLOBIN DECREASED [None]
  - PLATELET COUNT DECREASED [None]
  - PNEUMONIA [None]
  - PYREXIA [None]
  - RENAL FAILURE ACUTE [None]
  - WHITE BLOOD CELL COUNT DECREASED [None]
